FAERS Safety Report 6104631-2 (Version None)
Quarter: 2009Q1

REPORT INFORMATION
  Report Type: 
  Country: None (occurrence: None)
  Receive Date: 20090303
  Receipt Date: 20090225
  Transmission Date: 20090719
  Serious: Yes (Hospitalization)
  Sender: FDA-Public Use
  Company Number: TPA2009A00327

PATIENT
  Sex: Male

DRUGS (1)
  1. ACTOPLUS MET [Suspect]
     Indication: TYPE 2 DIABETES MELLITUS
     Dosage: 15MG / 850MG, 2 IN 1 D, PER ORAL
     Route: 048

REACTIONS (2)
  - HYPOGLYCAEMIA [None]
  - RENAL FAILURE [None]
